FAERS Safety Report 7766273-2 (Version None)
Quarter: 2011Q3

REPORT INFORMATION
  Report Type: 
  Country: None (occurrence: None)
  Receive Date: 20110922
  Receipt Date: 20110916
  Transmission Date: 20111222
  Serious: Yes (Death, Hospitalization, Other)
  Sender: FDA-Public Use
  Company Number: US-BIOGENIDEC-2011BI024432

PATIENT
  Age: 63 Year
  Sex: Female

DRUGS (1)
  1. TYSABRI [Suspect]
     Indication: MULTIPLE SCLEROSIS
     Route: 042
     Dates: start: 20090720, end: 20110610

REACTIONS (9)
  - HYPERGLYCAEMIA [None]
  - FALL [None]
  - CONDITION AGGRAVATED [None]
  - URINARY TRACT INFECTION [None]
  - REBOUND EFFECT [None]
  - PNEUMONIA [None]
  - HEMIPLEGIA [None]
  - MULTIPLE SCLEROSIS [None]
  - PROGRESSIVE MULTIFOCAL LEUKOENCEPHALOPATHY [None]
